FAERS Safety Report 17105893 (Version 1)
Quarter: 2019Q4

REPORT INFORMATION
  Report Type: Spontaneous
  Country: PL (occurrence: PL)
  Receive Date: 20191203
  Receipt Date: 20191203
  Transmission Date: 20200122
  Serious: Yes (Other)
  Sender: FDA-Public Use
  Company Number: NVSC2019PL050044

PATIENT
  Age: 18 Month
  Sex: Male

DRUGS (15)
  1. GRAFALON [Suspect]
     Active Substance: LAPINE T-LYMPHOCYTE IMMUNE GLOBULIN
     Indication: STEM CELL TRANSPLANT
     Dosage: 30 MG/KG (ON DAYS -12 TO -9 (1 MG/KG ON DAY -12; 9 MG/KG ON DAY -11; 10 MG/KG ON DAYS -10 AND -9).
     Route: 065
  2. THYMOGLOBULIN [Suspect]
     Active Substance: LAPINE T-LYMPHOCYTE IMMUNE GLOBULIN
     Indication: TRANSPLANT
     Dosage: 2.5 MG/KG, QD ((DAYS -3 TO -1)
     Route: 065
  3. FLUDARABINE PHOSPHATE. [Suspect]
     Active Substance: FLUDARABINE PHOSPHATE
     Indication: STEM CELL TRANSPLANT
     Dosage: 30 MG/M2 FOR 5 DAYS (DAYS -7 TO -3)
     Route: 065
  4. THIOTEPA. [Suspect]
     Active Substance: THIOTEPA
     Indication: STEM CELL TRANSPLANT
     Dosage: 5 MG/KG, BID (DAY 2)
     Route: 065
  5. METHYLPREDNISOLONE. [Suspect]
     Active Substance: METHYLPREDNISOLONE
     Indication: IMMUNOSUPPRESSION
  6. THIOTEPA. [Suspect]
     Active Substance: THIOTEPA
     Indication: IMMUNOSUPPRESSION
  7. BUSULFAN. [Suspect]
     Active Substance: BUSULFAN
     Indication: IMMUNOSUPPRESSION
     Dosage: 1.2 MG/KG (4 X 1.2 MG/KG FOR 4 DAYS (DAYS -7 TO -4)
     Route: 065
  8. CYCLOSPORINE. [Suspect]
     Active Substance: CYCLOSPORINE
     Indication: IMMUNOSUPPRESSION
  9. GRAFALON [Suspect]
     Active Substance: LAPINE T-LYMPHOCYTE IMMUNE GLOBULIN
     Indication: IMMUNOSUPPRESSION
  10. TREOSULFAN [Suspect]
     Active Substance: TREOSULFAN
     Indication: STEM CELL TRANSPLANT
     Dosage: 12 MG/M2 FOR 3 DAYS (DAYS -6 TO -4),
     Route: 065
  11. METHYLPREDNISOLONE. [Suspect]
     Active Substance: METHYLPREDNISOLONE
     Indication: STEM CELL TRANSPLANT
     Dosage: 1 MG/KG
     Route: 065
  12. BUSULFAN. [Suspect]
     Active Substance: BUSULFAN
     Indication: STEM CELL TRANSPLANT
  13. TREOSULFAN [Suspect]
     Active Substance: TREOSULFAN
     Indication: IMMUNOSUPPRESSION
  14. CYCLOSPORINE. [Suspect]
     Active Substance: CYCLOSPORINE
     Indication: STEM CELL TRANSPLANT
     Dosage: 1.5 MG/KG, BID
     Route: 065
  15. FLUDARABINE PHOSPHATE. [Suspect]
     Active Substance: FLUDARABINE PHOSPHATE
     Indication: IMMUNOSUPPRESSION

REACTIONS (6)
  - Hyperglycaemia [Unknown]
  - Product use in unapproved indication [Unknown]
  - Transplant rejection [Unknown]
  - Blood lactate dehydrogenase increased [Unknown]
  - Mucosal inflammation [Unknown]
  - Pyrexia [Unknown]
